FAERS Safety Report 9223832 (Version 1)
Quarter: 2013Q2

REPORT INFORMATION
  Report Type: Spontaneous
  Country: US (occurrence: US)
  Receive Date: 20130410
  Receipt Date: 20130410
  Transmission Date: 20140414
  Serious: No
  Sender: FDA-Public Use
  Company Number: US-009507513-1304USA001661

PATIENT
  Age: 52 Year
  Sex: Female

DRUGS (1)
  1. DIPROSONE [Suspect]
     Indication: ANGIOSARCOMA
     Dosage: TOPICAL, TWICE DAILY
     Route: 061
     Dates: start: 2009

REACTIONS (1)
  - Drug ineffective [Unknown]
